FAERS Safety Report 6745503-X (Version None)
Quarter: 2010Q2

REPORT INFORMATION
  Report Type: 
  Country: None (occurrence: None)
  Receive Date: 20100528
  Receipt Date: 20100518
  Transmission Date: 20101027
  Serious: No
  Sender: FDA-Public Use
  Company Number: US-JNJFOC-20100508225

PATIENT
  Sex: Female
  Weight: 52.62 kg

DRUGS (4)
  1. DURAGESIC-100 [Suspect]
     Indication: BACK PAIN
     Dosage: NDC# 50458-0092-05
     Route: 062
  2. DURAGESIC-100 [Suspect]
     Route: 062
  3. VITAMIN TAB [Concomitant]
     Indication: NUTRITIONAL SUPPORT
     Route: 048
  4. HYDROCODONE [Concomitant]
     Indication: BREAKTHROUGH PAIN
     Route: 048

REACTIONS (4)
  - DRUG INEFFECTIVE [None]
  - INCORRECT DOSE ADMINISTERED [None]
  - INITIAL INSOMNIA [None]
  - PAIN IN EXTREMITY [None]
